FAERS Safety Report 5496309-3 (Version None)
Quarter: 2007Q4

REPORT INFORMATION
  Report Type: 
  Country: None (occurrence: None)
  Receive Date: 20071025
  Receipt Date: 20070323
  Transmission Date: 20080405
  Serious: No
  Sender: FDA-Public Use
  Company Number: A0644377A

PATIENT
  Age: 68 Year
  Sex: Male

DRUGS (6)
  1. ADVAIR DISKUS 100/50 [Suspect]
     Indication: ASTHMA
     Dosage: 1PUFF TWICE PER DAY
     Route: 055
     Dates: start: 20040101
  2. DIOVAN [Concomitant]
  3. NORVASC [Concomitant]
  4. BUSPAR [Concomitant]
  5. SEROQUEL [Concomitant]
  6. PROZAC [Concomitant]

REACTIONS (2)
  - LOCAL SWELLING [None]
  - WEIGHT INCREASED [None]
